FAERS Safety Report 13591739 (Version 5)
Quarter: 2018Q4

REPORT INFORMATION
  Report Type: Spontaneous
  Country: US (occurrence: US)
  Receive Date: 20170530
  Receipt Date: 20181217
  Transmission Date: 20190204
  Serious: Yes (Hospitalization)
  Sender: FDA-Public Use
  Company Number: US-PFIZER INC-2017232893

PATIENT
  Age: 57 Year
  Sex: Female

DRUGS (3)
  1. IBRANCE [Suspect]
     Active Substance: PALBOCICLIB
     Indication: BREAST CANCER
     Dosage: 125 MG CYCLIC (DAILY FOR 21 DAYS)
     Route: 048
     Dates: start: 20170504
  2. IBRANCE [Suspect]
     Active Substance: PALBOCICLIB
     Dosage: 75 MG, CYCLIC (DAYS 1- 21)
     Route: 048
  3. IBRANCE [Suspect]
     Active Substance: PALBOCICLIB
     Dosage: 100 MG, ONCE DAILY
     Route: 048

REACTIONS (10)
  - Weight decreased [Unknown]
  - Pruritus [Unknown]
  - Headache [Unknown]
  - Full blood count decreased [Unknown]
  - Diarrhoea [Unknown]
  - Dry skin [Unknown]
  - Peripheral swelling [Unknown]
  - Pelvic mass [Unknown]
  - Nausea [Unknown]
  - Urinary tract infection [Unknown]

NARRATIVE: CASE EVENT DATE: 20170517
